FAERS Safety Report 5447492-7 (Version None)
Quarter: 2007Q3

REPORT INFORMATION
  Report Type: 
  Country: None (occurrence: None)
  Receive Date: 20070910
  Receipt Date: 20070904
  Transmission Date: 20080115
  Serious: Yes (Hospitalization)
  Sender: FDA-Public Use
  Company Number: B0462189A

PATIENT
  Age: 90 Year
  Sex: Female
  Weight: 42 kg

DRUGS (9)
  1. VALTREX [Suspect]
     Indication: HERPES ZOSTER
     Dosage: 1G THREE TIMES PER DAY
     Route: 048
     Dates: start: 20070216, end: 20070219
  2. VOLTAREN [Suspect]
     Indication: HERPES ZOSTER
     Dosage: 25MG THREE TIMES PER DAY
     Route: 048
     Dates: start: 20070216, end: 20070218
  3. CEFZON [Concomitant]
     Indication: HERPES ZOSTER
     Dosage: 300MG PER DAY
     Route: 048
     Dates: start: 20070216
  4. MARZULENE-S [Concomitant]
     Indication: HERPES ZOSTER
     Dosage: 2.001G PER DAY
     Route: 048
     Dates: start: 20070216
  5. GENTACIN [Concomitant]
     Indication: HERPES ZOSTER
     Route: 061
     Dates: start: 20070216
  6. ADALAT [Concomitant]
     Indication: HYPERTENSION
     Dosage: 40MG PER DAY
     Route: 048
  7. CANDESARTAN CILEXETIL [Concomitant]
     Indication: HYPERTENSION
     Dosage: 12MG PER DAY
     Route: 048
  8. PRAVASTATIN [Concomitant]
     Dosage: 10MG PER DAY
     Route: 048
  9. ZOLPIDEM [Concomitant]
     Indication: INSOMNIA
     Dosage: 10MG PER DAY
     Route: 048

REACTIONS (11)
  - ALTERED STATE OF CONSCIOUSNESS [None]
  - ASTERIXIS [None]
  - CEREBRAL ATROPHY [None]
  - DISORIENTATION [None]
  - DYSARTHRIA [None]
  - ISCHAEMIA [None]
  - NAUSEA [None]
  - RENAL FAILURE ACUTE [None]
  - SOMNOLENCE [None]
  - TOXIC ENCEPHALOPATHY [None]
  - VOMITING [None]
